FAERS Safety Report 20579321 (Version 1)
Quarter: 2022Q1

REPORT INFORMATION
  Report Type: Spontaneous
  Country: CA (occurrence: CA)
  Receive Date: 20220310
  Receipt Date: 20220310
  Transmission Date: 20220423
  Serious: Yes (Hospitalization)
  Sender: FDA-Public Use
  Company Number: CA-PFIZER INC-202200346281

PATIENT
  Age: 88 Year
  Sex: Male

DRUGS (3)
  1. SPIRONOLACTONE [Suspect]
     Active Substance: SPIRONOLACTONE
  2. BISOPROLOL FUMARATE [Suspect]
     Active Substance: BISOPROLOL FUMARATE
  3. RAMIPRIL [Suspect]
     Active Substance: RAMIPRIL

REACTIONS (4)
  - Bradycardia [Unknown]
  - Cardiac failure [Unknown]
  - Hyperkalaemia [Unknown]
  - Hypotension [Unknown]
